FAERS Safety Report 12665713 (Version 2)
Quarter: 2016Q3

REPORT INFORMATION
  Report Type: Report from Study
  Country: US (occurrence: US)
  Receive Date: 20160818
  Receipt Date: 20160919
  Transmission Date: 20161109
  Serious: Yes (Hospitalization, Other)
  Sender: FDA-Public Use
  Company Number: US-ABBVIE-16K-163-1699356-00

PATIENT
  Age: 55 Year
  Sex: Female
  Weight: 49.94 kg

DRUGS (3)
  1. VITAMIN D [Concomitant]
     Active Substance: CHOLECALCIFEROL
     Indication: PRODUCT USED FOR UNKNOWN INDICATION
  2. HUMIRA [Suspect]
     Active Substance: ADALIMUMAB
     Indication: PSORIATIC ARTHROPATHY
     Route: 058
     Dates: start: 200706, end: 200707
  3. HUMIRA [Suspect]
     Active Substance: ADALIMUMAB
     Route: 058
     Dates: start: 201607

REACTIONS (17)
  - Post procedural complication [Unknown]
  - Psoriasis [Recovered/Resolved]
  - Dizziness [Recovered/Resolved]
  - Psoriasis [Not Recovered/Not Resolved]
  - Lung neoplasm malignant [Recovered/Resolved with Sequelae]
  - Pleural effusion [Recovered/Resolved]
  - Contusion [Recovered/Resolved]
  - Pulmonary fibrosis [Not Recovered/Not Resolved]
  - Lung neoplasm malignant [Recovered/Resolved]
  - Fatigue [Not Recovered/Not Resolved]
  - Foot fracture [Recovered/Resolved]
  - Pain in extremity [Recovered/Resolved]
  - Lung neoplasm malignant [Unknown]
  - Fall [Recovered/Resolved]
  - Lung neoplasm malignant [Recovering/Resolving]
  - Peripheral swelling [Recovered/Resolved]
  - Pulmonary pain [Not Recovered/Not Resolved]

NARRATIVE: CASE EVENT DATE: 200707
